FAERS Safety Report 9033434 (Version 1)
Quarter: 2013Q1

REPORT INFORMATION
  Report Type: Spontaneous
  Country: AT (occurrence: AT)
  Receive Date: 20130128
  Receipt Date: 20130128
  Transmission Date: 20140127
  Serious: Yes (Other)
  Sender: FDA-Public Use
  Company Number: AT-AMGEN-AUTSP2011062943

PATIENT
  Age: 45 Year
  Sex: Female

DRUGS (5)
  1. VECTIBIX [Suspect]
     Indication: RECTOSIGMOID CANCER
     Dosage: 6 MG/KG, UNK
     Dates: start: 20110614
  2. FOLFIRI [Concomitant]
     Dosage: UNK
     Dates: start: 20110614
  3. ATROPIN                            /00002801/ [Concomitant]
  4. CAMPTO [Concomitant]
  5. SOLU-DECORTIN-H [Concomitant]

REACTIONS (7)
  - Infusion related reaction [Unknown]
  - Skin reaction [Unknown]
  - Rash maculo-papular [Unknown]
  - Dizziness [Unknown]
  - Nausea [Unknown]
  - Abdominal pain [Unknown]
  - Pain [Unknown]
